FAERS Safety Report 6013461-1 (Version None)
Quarter: 2008Q4

REPORT INFORMATION
  Report Type: 
  Country: None (occurrence: None)
  Receive Date: 20081219
  Receipt Date: 20081216
  Transmission Date: 20090506
  Serious: Yes (Hospitalization)
  Sender: FDA-Public Use
  Company Number: FR-WYE-G02400708

PATIENT
  Sex: Male
  Weight: 70 kg

DRUGS (4)
  1. TORISEL [Suspect]
     Indication: RENAL CANCER METASTATIC
     Route: 042
     Dates: start: 20080923, end: 20081001
  2. SOLUDECADRON [Concomitant]
     Indication: PREMEDICATION
     Dosage: 40 MG BEFORE EACH TORISEL COURSE
     Route: 042
     Dates: start: 20080923, end: 20081001
  3. LASIX [Concomitant]
     Dosage: UNKNOWN
  4. POLARAMINE [Concomitant]
     Indication: PREMEDICATION
     Dosage: 10 MG BEFORE EACH TORISEL COURSE
     Route: 042
     Dates: start: 20080923, end: 20081001

REACTIONS (7)
  - ANAEMIA [None]
  - CONDITION AGGRAVATED [None]
  - HYPERSENSITIVITY [None]
  - INTERSTITIAL LUNG DISEASE [None]
  - PNEUMONIA [None]
  - PRURITUS [None]
  - TACHYCARDIA [None]
